FAERS Safety Report 6261127-5 (Version None)
Quarter: 2009Q3

REPORT INFORMATION
  Report Type: 
  Country: None (occurrence: None)
  Receive Date: 20090709
  Receipt Date: 20081212
  Transmission Date: 20100115
  Serious: No
  Sender: FDA-Public Use
  Company Number: US-KINGPHARMUSA00001-K200801407

PATIENT
  Age: 58 Year
  Sex: Female
  Weight: 55.329 kg

DRUGS (3)
  1. LEVOXYL [Suspect]
     Indication: HYPOTHYROIDISM
     Dosage: 112 MCG, QD
     Route: 048
     Dates: start: 20050101, end: 20050101
  2. LEVOXYL [Suspect]
     Dosage: 50 MCG, QD
     Dates: start: 20060101, end: 20061101
  3. LEVOXYL [Suspect]
     Dosage: 75 MCG, QD
     Dates: start: 20061101

REACTIONS (5)
  - BLOOD THYROID STIMULATING HORMONE DECREASED [None]
  - DIZZINESS POSTURAL [None]
  - HEADACHE [None]
  - NAUSEA [None]
  - WEIGHT DECREASED [None]
